FAERS Safety Report 23288415 (Version 1)
Quarter: 2023Q4

REPORT INFORMATION
  Report Type: Spontaneous
  Country: US (occurrence: None)
  Receive Date: 20231211
  Receipt Date: 20231211
  Transmission Date: 20240110
  Serious: Yes (Other)
  Sender: FDA-Public Use
  Company Number: None

PATIENT
  Age: 46 Year
  Sex: Female

DRUGS (7)
  1. DULCOLAX (BISACODYL) [Suspect]
     Active Substance: BISACODYL
     Indication: Constipation
     Dosage: OTHER QUANTITY : 25 TABLET(S);?FREQUENCY : DAILY;?
     Route: 048
     Dates: start: 20231211, end: 20231211
  2. ATIVAN [Concomitant]
     Active Substance: LORAZEPAM
  3. AMBIEN [Concomitant]
     Active Substance: ZOLPIDEM TARTRATE
  4. FIORICET [Concomitant]
     Active Substance: ACETAMINOPHEN\BUTALBITAL\CAFFEINE
  5. B-12 Injections [Concomitant]
  6. Toradol Injections [Concomitant]
  7. VITAMIN D3 [Concomitant]
     Active Substance: CHOLECALCIFEROL

REACTIONS (9)
  - Nausea [None]
  - Vomiting [None]
  - Throat irritation [None]
  - Dysgeusia [None]
  - Throat tightness [None]
  - Pharyngeal erythema [None]
  - Dyspnoea [None]
  - Pharyngeal haemorrhage [None]
  - Somnolence [None]

NARRATIVE: CASE EVENT DATE: 20231211
